FAERS Safety Report 14381942 (Version 5)
Quarter: 2018Q1

REPORT INFORMATION
  Report Type: Spontaneous
  Country: US (occurrence: US)
  Receive Date: 20180112
  Receipt Date: 20180223
  Transmission Date: 20180509
  Serious: Yes (Other)
  Sender: FDA-Public Use
  Company Number: US-TEVA-2018-US-845040

PATIENT
  Age: 40 Year
  Sex: Female
  Weight: 91 kg

DRUGS (2)
  1. FLUOXETINE [Concomitant]
     Active Substance: FLUOXETINE HYDROCHLORIDE
     Indication: ANXIETY
  2. PARAGARD T 380A [Suspect]
     Active Substance: COPPER
     Indication: CONTRACEPTION
     Route: 065
     Dates: start: 20090109, end: 20171221

REACTIONS (7)
  - Device dislocation [Recovered/Resolved]
  - Dysmenorrhoea [Recovered/Resolved]
  - Vaginal haemorrhage [Recovered/Resolved]
  - Device breakage [Recovered/Resolved]
  - Abdominal pain lower [Recovered/Resolved]
  - Embedded device [Recovered/Resolved]
  - Pain [Recovered/Resolved]

NARRATIVE: CASE EVENT DATE: 201710
